FAERS Safety Report 6003084-2 (Version None)
Quarter: 2008Q4

REPORT INFORMATION
  Report Type: 
  Country: None (occurrence: None)
  Receive Date: 20081212
  Receipt Date: 20081212
  Transmission Date: 20090506
  Serious: No
  Sender: FDA-Public Use
  Company Number: None

PATIENT
  Age: 53 Year
  Sex: Male

DRUGS (2)
  1. LAMICTAL [Suspect]
     Indication: CYCLOTHYMIC DISORDER
     Dosage: 250MG QD PO
     Route: 048
     Dates: start: 20060126
  2. LAMICTAL [Suspect]
     Indication: DEPRESSION
     Dosage: 250MG QD PO
     Route: 048
     Dates: start: 20060126

REACTIONS (2)
  - HYPOACUSIS [None]
  - TINNITUS [None]
